FAERS Safety Report 13427061 (Version 1)
Quarter: 2017Q2

REPORT INFORMATION
  Report Type: Spontaneous
  Country: DE (occurrence: DE)
  Receive Date: 20170411
  Receipt Date: 20170411
  Transmission Date: 20170830
  Serious: Yes (Other)
  Sender: FDA-Public Use
  Company Number: DE-TORRENT-00006350

PATIENT
  Age: 32 Year
  Sex: Female
  Weight: 84 kg

DRUGS (4)
  1. FOLIO FORTE [Concomitant]
     Active Substance: FOLIC ACID\VITAMINS
  2. ACTRAPID [Concomitant]
     Active Substance: INSULIN HUMAN
  3. CEFUROXIME. [Concomitant]
     Active Substance: CEFUROXIME
  4. QUETIAPINE. [Suspect]
     Active Substance: QUETIAPINE

REACTIONS (2)
  - Exposure during pregnancy [Unknown]
  - Gestational diabetes [Recovered/Resolved]
